FAERS Safety Report 6779998-2 (Version None)
Quarter: 2010Q2

REPORT INFORMATION
  Report Type: 
  Country: None (occurrence: None)
  Receive Date: 20100618
  Receipt Date: 20100614
  Transmission Date: 20101027
  Serious: Yes (Other)
  Sender: FDA-Public Use
  Company Number: US-BRISTOL-MYERS SQUIBB COMPANY-15148976

PATIENT
  Age: 56 Year
  Sex: Female

DRUGS (2)
  1. COUMADIN [Suspect]
  2. LOVENOX [Suspect]
     Indication: THROMBOSIS PROPHYLAXIS
     Dosage: 110 MILLIGRAM/MILLILITRE DAILY, INJECTION, SOLUTION
     Route: 058
     Dates: start: 20091117

REACTIONS (3)
  - DECREASED APPETITE [None]
  - INJECTION SITE NODULE [None]
  - RIB FRACTURE [None]
